FAERS Safety Report 4422127-0 (Version None)
Quarter: 2004Q3

REPORT INFORMATION
  Report Type: 
  Country: None (occurrence: None)
  Receive Date: 20040806
  Receipt Date: 20040728
  Transmission Date: 20050211
  Serious: Yes (Hospitalization, Other)
  Sender: FDA-Public Use
  Company Number: 2003-04-1915

PATIENT
  Age: 50 Year
  Sex: Male

DRUGS (7)
  1. PEG-INTRON [Suspect]
     Indication: HEPATITIS C
     Dosage: 96 MCG QWK SUBCUTANEOUS
     Route: 058
     Dates: start: 20021202, end: 20030224
  2. REBETOL [Suspect]
     Indication: HEPATITIS C
     Dosage: 800 MG QD ORAL
     Route: 048
     Dates: start: 20021202, end: 20030224
  3. AMITRIPTYLINE HCL [Concomitant]
  4. IBUPROFEN [Concomitant]
  5. HALDOL [Concomitant]
  6. WELLBUTRIN [Concomitant]
  7. TRIHEXYPHENIDYL HCL [Concomitant]

REACTIONS (1)
  - RHABDOMYOLYSIS [None]
